FAERS Safety Report 22079808 (Version 1)
Quarter: 2023Q1

REPORT INFORMATION
  Report Type: Spontaneous
  Country: US (occurrence: US)
  Receive Date: 20230309
  Receipt Date: 20230309
  Transmission Date: 20230417
  Serious: Yes (Other)
  Sender: FDA-Public Use
  Company Number: US-TAKEDA-2023TUS023249

PATIENT

DRUGS (1)
  1. VYVANSE [Suspect]
     Active Substance: LISDEXAMFETAMINE DIMESYLATE
     Indication: Product used for unknown indication
     Dosage: UNK
     Route: 065
     Dates: start: 202003

REACTIONS (10)
  - Provisional tic disorder [Unknown]
  - Pain [Unknown]
  - Emotional distress [Unknown]
  - Feeding disorder [Unknown]
  - Stress [Unknown]
  - Crying [Unknown]
  - Myalgia [Unknown]
  - Visual impairment [Unknown]
  - Impaired quality of life [Unknown]
  - Loss of personal independence in daily activities [Unknown]
